FAERS Safety Report 10247073 (Version 1)
Quarter: 2014Q2

REPORT INFORMATION
  Report Type: Spontaneous
  Country: US (occurrence: US)
  Receive Date: 20140619
  Receipt Date: 20140619
  Transmission Date: 20141212
  Serious: Yes (Other)
  Sender: FDA-Public Use
  Company Number: US-TEVA-487587USA

PATIENT
  Age: 45 Year
  Sex: Male
  Weight: 88.53 kg

DRUGS (4)
  1. COPAXONE [Suspect]
     Indication: MULTIPLE SCLEROSIS
     Dates: end: 201406
  2. COPAXONE [Suspect]
     Dates: start: 201406
  3. FOBIC [Concomitant]
  4. VITAMIN D [Concomitant]

REACTIONS (2)
  - Dysplastic naevus [Not Recovered/Not Resolved]
  - Melanocytic naevus [Not Recovered/Not Resolved]
